FAERS Safety Report 16787875 (Version 2)
Quarter: 2019Q4

REPORT INFORMATION
  Report Type: Spontaneous
  Country: DE (occurrence: DE)
  Receive Date: 20190909
  Receipt Date: 20191024
  Transmission Date: 20200122
  Serious: Yes (Other)
  Sender: FDA-Public Use
  Company Number: DE-GE HEALTHCARE LIFE SCIENCES-2019CSU004554

PATIENT

DRUGS (3)
  1. VISIPAQUE [Suspect]
     Active Substance: IODIXANOL
     Indication: COMPUTERISED TOMOGRAM ABDOMEN
     Dosage: 75 ML, SINGLE
     Route: 042
     Dates: start: 20190903, end: 20190903
  2. VISIPAQUE [Suspect]
     Active Substance: IODIXANOL
     Indication: HEPATIC LESION
  3. VISIPAQUE [Suspect]
     Active Substance: IODIXANOL
     Indication: POLYCYSTIC LIVER DISEASE

REACTIONS (1)
  - Muscle spasticity [Recovered/Resolved]

NARRATIVE: CASE EVENT DATE: 20190903
